FAERS Safety Report 9707236 (Version 1)
Quarter: 2013Q4

REPORT INFORMATION
  Report Type: Spontaneous
  Country: US (occurrence: US)
  Receive Date: 20131125
  Receipt Date: 20131125
  Transmission Date: 20140711
  Serious: No
  Sender: FDA-Public Use
  Company Number: US-MALLINCKRODT-T201304682

PATIENT
  Age: 42 Year
  Sex: Female
  Weight: 43.84 kg

DRUGS (2)
  1. TECHNESCAN MAG3 [Suspect]
     Indication: RENAL SCAN
     Dosage: UNK, SINGLE
     Route: 042
     Dates: start: 201308, end: 201308
  2. ULTRA-TECHNEKOW DTE [Suspect]
     Indication: RENAL SCAN
     Dosage: 30 MCI, SINGLE
     Route: 042
     Dates: start: 201308, end: 201308

REACTIONS (4)
  - Abdominal distension [Not Recovered/Not Resolved]
  - Breast swelling [Not Recovered/Not Resolved]
  - Tremor [Recovered/Resolved]
  - Chills [Recovered/Resolved]
